FAERS Safety Report 7911121-0 (Version None)
Quarter: 2011Q4

REPORT INFORMATION
  Report Type: 
  Country: None (occurrence: None)
  Receive Date: 20111109
  Receipt Date: 20111027
  Transmission Date: 20120403
  Serious: Yes (Other)
  Sender: FDA-Public Use
  Company Number: AXC-2011-000470

PATIENT
  Sex: Female

DRUGS (1)
  1. URSODIOL [Suspect]
     Indication: CHOLELITHIASIS
     Dosage: 3 TO 4 TABLETS QD,

REACTIONS (1)
  - CHOLECYSTITIS [None]
